FAERS Safety Report 5040962-5 (Version None)
Quarter: 2006Q3

REPORT INFORMATION
  Report Type: 
  Country: None (occurrence: None)
  Receive Date: 20060703
  Receipt Date: 20060623
  Transmission Date: 20061208
  Serious: Yes (Hospitalization)
  Sender: FDA-Public Use
  Company Number: FR-SP-2006-01573

PATIENT

DRUGS (2)
  1. IMMUCYST [Suspect]
     Indication: BLADDER CANCER
     Route: 065
  2. PLAVIX [Concomitant]

REACTIONS (2)
  - BOVINE TUBERCULOSIS [None]
  - UNEVALUABLE EVENT [None]
